FAERS Safety Report 14228682 (Version 1)
Quarter: 2017Q4

REPORT INFORMATION
  Report Type: Spontaneous
  Country: US (occurrence: None)
  Receive Date: 20171124
  Receipt Date: 20171124
  Transmission Date: 20180321
  Serious: Yes (Hospitalization)
  Sender: FDA-Public Use
  Company Number: None

PATIENT
  Age: 63 Year
  Sex: Female

DRUGS (35)
  1. CLOBETASOL [Concomitant]
     Active Substance: CLOBETASOL
  2. METHYLPRED [Concomitant]
     Active Substance: METHYLPREDNISOLONE
  3. L-THYROXINE [Concomitant]
     Active Substance: LEVOTHYROXINE
  4. HYDROCODONE BITARTRATE AND ACETAMINOPHEN [Concomitant]
     Active Substance: ACETAMINOPHEN\HYDROCODONE BITARTRATE
  5. DOB [Concomitant]
  6. METFORMIN [Concomitant]
     Active Substance: METFORMIN HYDROCHLORIDE
  7. OLUX-E [Concomitant]
     Active Substance: CLOBETASOL PROPIONATE
  8. FLUOXETINE [Concomitant]
     Active Substance: FLUOXETINE HYDROCHLORIDE
  9. MULTIVIT [Concomitant]
     Active Substance: VITAMINS
  10. FLUOCINONIDE. [Concomitant]
     Active Substance: FLUOCINONIDE
  11. FLUTICASONE. [Concomitant]
     Active Substance: FLUTICASONE
  12. CLINDAMYCIN. [Concomitant]
     Active Substance: CLINDAMYCIN
  13. DOXYCYCLINE HYCLATE. [Concomitant]
     Active Substance: DOXYCYCLINE HYCLATE
  14. TACLONEX [Concomitant]
     Active Substance: BETAMETHASONE DIPROPIONATE\CALCIPOTRIENE\CALCIPOTRIENE HYDRATE
  15. METOCLOPRAM [Concomitant]
     Active Substance: METOCLOPRAMIDE
  16. VENLAFAXINE [Concomitant]
     Active Substance: VENLAFAXINE HYDROCHLORIDE
  17. PHENTERMINE. [Concomitant]
     Active Substance: PHENTERMINE
  18. PRILOSEC [Concomitant]
     Active Substance: OMEPRAZOLE MAGNESIUM
  19. ETODOLAC. [Concomitant]
     Active Substance: ETODOLAC
  20. CICLOPIROX. [Concomitant]
     Active Substance: CICLOPIROX
  21. PANTOPRAZOLE [Concomitant]
     Active Substance: PANTOPRAZOLE
  22. ALPRAZOLAM. [Concomitant]
     Active Substance: ALPRAZOLAM
  23. PATANOL [Concomitant]
     Active Substance: OLOPATADINE HYDROCHLORIDE
  24. ONDANSETRON [Concomitant]
     Active Substance: ONDANSETRON
  25. ATORVASTATIN [Concomitant]
     Active Substance: ATORVASTATIN
  26. GAVILYTE G [Concomitant]
     Active Substance: POLYETHYLENE GLYCOL 3350\POTASSIUM CHLORIDE\SODIUM BICARBONATE\SODIUM CHLORIDE\SODIUM SULFATE ANHYDROUS
  27. DIAZEPAM. [Concomitant]
     Active Substance: DIAZEPAM
  28. PREDNISONE. [Concomitant]
     Active Substance: PREDNISONE
  29. VECTICAL [Concomitant]
     Active Substance: CALCITRIOL
  30. PROTONIX [Concomitant]
     Active Substance: PANTOPRAZOLE SODIUM
  31. MECLIZINE [Concomitant]
     Active Substance: MECLIZINE HYDROCHLORIDE
  32. STELARA [Suspect]
     Active Substance: USTEKINUMAB
     Indication: PSORIASIS
     Dosage: 90MG/ML PFS EVERY 3 MONTHS SUBCUTANEOUSLY
     Route: 058
     Dates: start: 20170801
  33. INDOMETHACIN. [Concomitant]
     Active Substance: INDOMETHACIN
  34. CUTIVATE [Concomitant]
     Active Substance: FLUTICASONE PROPIONATE
  35. MONTELUKAST [Concomitant]
     Active Substance: MONTELUKAST SODIUM

REACTIONS (1)
  - Weight decreased [None]

NARRATIVE: CASE EVENT DATE: 20171017
